FAERS Safety Report 23971056 (Version 1)
Quarter: 2024Q2

REPORT INFORMATION
  Report Type: Spontaneous
  Country: FR (occurrence: FR)
  Receive Date: 20240613
  Receipt Date: 20240613
  Transmission Date: 20240716
  Serious: Yes (Hospitalization)
  Sender: FDA-Public Use
  Company Number: FR-SUN PHARMACEUTICAL INDUSTRIES LTD-2024RR-451361

PATIENT
  Age: 23 Year
  Sex: Male

DRUGS (9)
  1. PREGABALIN [Suspect]
     Active Substance: PREGABALIN
     Indication: Product used for unknown indication
     Dosage: 4 TABLETS DECLARED
     Route: 048
     Dates: start: 20211125, end: 20211125
  2. PREGABALIN [Suspect]
     Active Substance: PREGABALIN
     Dosage: 20 TABLETS ANNOUNCED
     Route: 048
     Dates: start: 20211120, end: 20211120
  3. PREGABALIN [Suspect]
     Active Substance: PREGABALIN
     Dosage: 2 BOXES ANNOUNCED (AT LEAST 56 TABLETS CONFIRMED)
     Route: 048
     Dates: start: 20211126, end: 20211126
  4. COCAINE [Suspect]
     Active Substance: COCAINE
     Indication: Product used for unknown indication
     Dosage: 1G DECLARED
     Route: 065
     Dates: start: 20211102, end: 20211102
  5. PRAZEPAM [Suspect]
     Active Substance: PRAZEPAM
     Indication: Product used for unknown indication
     Dosage: 20 TABLETS DECLARED
     Route: 048
     Dates: start: 20211119, end: 20211119
  6. CANNABIS SATIVA SUBSP. INDICA TOP [Suspect]
     Active Substance: CANNABIS SATIVA SUBSP. INDICA TOP
     Indication: Product used for unknown indication
     Dosage: MULTIPLE JOINTS/DAY
     Route: 055
  7. CLONAZEPAM [Suspect]
     Active Substance: CLONAZEPAM
     Indication: Product used for unknown indication
     Dosage: UNSPECIFIED DOSE
     Route: 048
  8. DIAZEPAM [Suspect]
     Active Substance: DIAZEPAM
     Indication: Product used for unknown indication
     Dosage: UNSPECIFIED DOSE
     Route: 048
  9. TRIMEPRAZINE [Concomitant]
     Active Substance: TRIMEPRAZINE
     Indication: Product used for unknown indication
     Dosage: UNSPECIFIED DOSE
     Route: 048

REACTIONS (1)
  - Poisoning deliberate [Recovered/Resolved]
